FAERS Safety Report 19830049 (Version 1)
Quarter: 2021Q3

REPORT INFORMATION
  Report Type: Spontaneous
  Country: US (occurrence: US)
  Receive Date: 20210915
  Receipt Date: 20210915
  Transmission Date: 20211014
  Serious: No
  Sender: FDA-Public Use
  Company Number: NVSC2021US208808

PATIENT
  Age: 82 Year
  Sex: Female

DRUGS (2)
  1. VOLTAREN JOINT PAIN [Suspect]
     Active Substance: DICLOFENAC DIETHYLAMINE
     Indication: NEURALGIA
  2. VOLTAREN JOINT PAIN [Suspect]
     Active Substance: DICLOFENAC DIETHYLAMINE
     Indication: MUSCLE STRAIN
     Dosage: 02 DF, BID
     Route: 065
     Dates: start: 20210904, end: 20210907

REACTIONS (4)
  - Inappropriate schedule of product administration [Unknown]
  - Off label use [Recovering/Resolving]
  - Product administered at inappropriate site [Unknown]
  - Drug effective for unapproved indication [Unknown]

NARRATIVE: CASE EVENT DATE: 20210904
